FAERS Safety Report 8024436-5 (Version None)
Quarter: 2012Q1

REPORT INFORMATION
  Report Type: 
  Country: None (occurrence: None)
  Receive Date: 20120105
  Receipt Date: 20111230
  Transmission Date: 20120608
  Serious: Yes (Hospitalization)
  Sender: FDA-Public Use
  Company Number: PHHY2011DE113743

PATIENT
  Sex: Female

DRUGS (2)
  1. RASILEZ [Suspect]
     Dates: start: 20090101
  2. BETA BLOCKING AGENTS [Concomitant]
     Dates: start: 20090101

REACTIONS (2)
  - MYOCARDIAL INFARCTION [None]
  - CHEST PAIN [None]
